FAERS Safety Report 23342438 (Version 2)
Quarter: 2024Q1

REPORT INFORMATION
  Report Type: Spontaneous
  Country: US (occurrence: US)
  Receive Date: 20231227
  Receipt Date: 20240116
  Transmission Date: 20240410
  Serious: No
  Sender: FDA-Public Use
  Company Number: US-Calliditas-2023CAL01647

PATIENT
  Age: 51 Year
  Sex: Male

DRUGS (6)
  1. TARPEYO [Suspect]
     Active Substance: BUDESONIDE
     Indication: IgA nephropathy
     Route: 048
     Dates: start: 202301
  2. SODIUM BICARBONATE [Concomitant]
     Active Substance: SODIUM BICARBONATE
  3. FARXIGA [Concomitant]
     Active Substance: DAPAGLIFLOZIN PROPANEDIOL
  4. OMEGA-3 FATTY ACIDS [Concomitant]
     Active Substance: OMEGA-3 FATTY ACIDS
  5. ATORVASTATIN [Concomitant]
     Active Substance: ATORVASTATIN
  6. ASCORBIC ACID\BIOTIN\CALCIUM PANTOTHENATE\CYANOCOBALAMIN\FOLIC ACID\NI [Concomitant]
     Active Substance: ASCORBIC ACID\BIOTIN\CALCIUM PANTOTHENATE\CYANOCOBALAMIN\FOLIC ACID\NIACINAMIDE\PYRIDOXINE HYDROCHLO

REACTIONS (2)
  - Rash [Not Recovered/Not Resolved]
  - Papule [Not Recovered/Not Resolved]

NARRATIVE: CASE EVENT DATE: 20230101
